FAERS Safety Report 23377416 (Version 2)
Quarter: 2024Q1

REPORT INFORMATION
  Report Type: Spontaneous
  Country: US (occurrence: US)
  Receive Date: 20240108
  Receipt Date: 20240206
  Transmission Date: 20240410
  Serious: No
  Sender: FDA-Public Use
  Company Number: US-PFIZER INC-PV202300209412

PATIENT
  Age: 66 Year
  Sex: Female

DRUGS (1)
  1. ENBREL [Suspect]
     Active Substance: ETANERCEPT
     Indication: Product used for unknown indication
     Dosage: UNK
     Route: 065

REACTIONS (11)
  - Condition aggravated [Unknown]
  - Arthralgia [Unknown]
  - Pain in extremity [Unknown]
  - Arthralgia [Unknown]
  - Arthralgia [Unknown]
  - Pain in extremity [Unknown]
  - Peripheral swelling [Unknown]
  - Joint swelling [Unknown]
  - Joint swelling [Unknown]
  - Osteoporosis [Unknown]
  - Musculoskeletal stiffness [Unknown]
